FAERS Safety Report 23741577 (Version 1)
Quarter: 2024Q2

REPORT INFORMATION
  Report Type: Spontaneous
  Country: US (occurrence: US)
  Receive Date: 20240415
  Receipt Date: 20240415
  Transmission Date: 20240716
  Serious: Yes (Hospitalization, Other)
  Sender: FDA-Public Use
  Company Number: US-CELLTRION INC.-2024US008628

PATIENT

DRUGS (5)
  1. RITUXIMAB [Suspect]
     Active Substance: RITUXIMAB
     Indication: Central nervous system lymphoma
     Dosage: TWO CYCLES WITH HIGH-DOSE METHOTREXATE, WHICH PRODUCED A PARTIAL RESPONSE (FROM ANOTHER HOSPITAL)
  2. RITUXIMAB [Suspect]
     Active Substance: RITUXIMAB
     Dosage: PLANNED TO GIVE TWO ADDITIONAL CYCLES OF RITUXIMAB AND HIGH-DOSE METHOTREXATE AND CONTINUE DEXAMETHA
  3. METHOTREXATE [Suspect]
     Active Substance: METHOTREXATE
     Indication: Central nervous system lymphoma
     Dosage: FIRST AT TWO CYCLES WITH RITUXIMAB, WHICH PRODUCED A PARTIAL RESPONSE (FROM ANOTHER HOSPITAL)
  4. METHOTREXATE [Suspect]
     Active Substance: METHOTREXATE
     Dosage: PLANNED TO GIVE TWO ADDITIONAL CYCLES OF RITUXIMAB AND HIGH-DOSE METHOTREXATE AND CONTINUE DEXAMETHA
  5. DEXAMETHASONE [Concomitant]
     Active Substance: DEXAMETHASONE
     Indication: Brain oedema

REACTIONS (4)
  - Leukoencephalopathy [Unknown]
  - Hepatitis [Unknown]
  - Hepatitis B reactivation [Unknown]
  - Therapy partial responder [Unknown]
